FAERS Safety Report 23657469 (Version 1)
Quarter: 2024Q1

REPORT INFORMATION
  Report Type: Spontaneous
  Country: US (occurrence: US)
  Receive Date: 20240321
  Receipt Date: 20240321
  Transmission Date: 20240410
  Serious: No
  Sender: FDA-Public Use
  Company Number: US-TEVA-VS-3150361

PATIENT
  Sex: Female

DRUGS (2)
  1. CLONAZEPAM [Suspect]
     Active Substance: CLONAZEPAM
     Indication: Product used for unknown indication
     Route: 065
  2. CLONAZEPAM [Suspect]
     Active Substance: CLONAZEPAM
     Indication: Product used for unknown indication
     Route: 065

REACTIONS (10)
  - Product physical issue [Unknown]
  - Anxiety [Unknown]
  - Nasopharyngitis [Unknown]
  - Pathogen resistance [Unknown]
  - Therapy change [Unknown]
  - Wrong patient [Unknown]
  - Pigment dispersion syndrome [Unknown]
  - Medication error [Unknown]
  - Medication error [Unknown]
  - Feeling abnormal [Unknown]
